FAERS Safety Report 4694783-3 (Version None)
Quarter: 2005Q2

REPORT INFORMATION
  Report Type: 
  Country: None (occurrence: None)
  Receive Date: 20050617
  Receipt Date: 20050606
  Transmission Date: 20051028
  Serious: Yes (Death)
  Sender: FDA-Public Use
  Company Number: 215066

PATIENT
  Age: 58 Year
  Sex: Female
  Weight: 109.3 kg

DRUGS (1)
  1. HERCEPTIN [Suspect]
     Indication: BREAST CANCER METASTATIC
     Dosage: 6 MG/KG, Q3W, INTRAVENOUS
     Route: 042
     Dates: start: 20050330, end: 20050601

REACTIONS (4)
  - MYOCARDIAL INFARCTION [None]
  - PULSE ABSENT [None]
  - RESPIRATORY ARREST [None]
  - ROAD TRAFFIC ACCIDENT [None]
